FAERS Safety Report 11622793 (Version 1)
Quarter: 2015Q4

REPORT INFORMATION
  Report Type: Spontaneous
  Country: US (occurrence: US)
  Receive Date: 20151013
  Receipt Date: 20151013
  Transmission Date: 20160304
  Serious: No
  Sender: FDA-Public Use
  Company Number: US-JNJFOC-20150323391

PATIENT
  Sex: Male

DRUGS (2)
  1. PAIN MEDICATION NOS [Concomitant]
     Indication: BACK INJURY
     Route: 065
  2. TYLENOL EXTRA STRENGTH [Suspect]
     Active Substance: ACETAMINOPHEN
     Indication: BACK INJURY
     Dosage: FOR OVER 90 DAYS, NEVER TAKING MORE THAN 3000MG
     Route: 048

REACTIONS (1)
  - Incorrect drug administration duration [Unknown]
